FAERS Safety Report 8875444 (Version 1)
Quarter: 2012Q4

REPORT INFORMATION
  Report Type: 
  Country: SE (occurrence: SE)
  Receive Date: 20121029
  Receipt Date: 20121029
  Transmission Date: 20130627
  Serious: Yes (Other)
  Sender: FDA-Public Use
  Company Number: SE-MERCK-1210SWE011713

PATIENT
  Age: 22 Year
  Sex: Male

DRUGS (2)
  1. NASONEX [Suspect]
     Dosage: Two times in each nostrils, bid
     Route: 045
     Dates: start: 20110720, end: 20121012
  2. RINEXIN [Concomitant]
     Route: 048

REACTIONS (2)
  - Vision blurred [Not Recovered/Not Resolved]
  - Cataract [Not Recovered/Not Resolved]
